FAERS Safety Report 25963064 (Version 1)
Quarter: 2025Q4

REPORT INFORMATION
  Report Type: Spontaneous
  Country: JP (occurrence: JP)
  Receive Date: 20251027
  Receipt Date: 20251027
  Transmission Date: 20260117
  Serious: Yes (Hospitalization)
  Sender: EISAI
  Company Number: JP-Eisai-EC-2025-198861

PATIENT
  Age: 77 Year
  Sex: Male
  Weight: 82.5 kg

DRUGS (8)
  1. LENVATINIB [Suspect]
     Active Substance: LENVATINIB
     Indication: Poorly differentiated thyroid carcinoma
     Route: 048
  2. LENVATINIB [Suspect]
     Active Substance: LENVATINIB
     Dosage: REDUCED DOSE
     Route: 048
  3. LENVATINIB [Suspect]
     Active Substance: LENVATINIB
     Dosage: REDUCED DOSE
     Route: 048
  4. LENVATINIB [Suspect]
     Active Substance: LENVATINIB
     Dosage: REDUCED DOSE, DOSE AND FREQUENCY UNKNOWN
     Route: 048
  5. LEVOTHYROXINE [Concomitant]
     Active Substance: LEVOTHYROXINE
     Indication: Hypothyroidism
  6. ALFACALCIDOL [Concomitant]
     Active Substance: ALFACALCIDOL
     Indication: Hypoparathyroidism
  7. IRBESARTAN [Concomitant]
     Active Substance: IRBESARTAN
     Indication: Hypertension
  8. AMLODIPINE [Concomitant]
     Active Substance: AMLODIPINE BESYLATE
     Indication: Hypertension

REACTIONS (1)
  - Microangiopathy [Unknown]
